FAERS Safety Report 14471765 (Version 1)
Quarter: 2018Q1

REPORT INFORMATION
  Report Type: Spontaneous
  Country: US (occurrence: US)
  Receive Date: 20180131
  Receipt Date: 20180131
  Transmission Date: 20180509
  Serious: Yes (Hospitalization, Other)
  Sender: FDA-Public Use
  Company Number: US-DSJP-DSU-2017-141419

PATIENT

DRUGS (3)
  1. BENICAR [Suspect]
     Active Substance: OLMESARTAN MEDOXOMIL
     Dosage: 20 MG, QD
     Dates: start: 20030317, end: 20170501
  2. BENICAR [Suspect]
     Active Substance: OLMESARTAN MEDOXOMIL
     Indication: PRODUCT USED FOR UNKNOWN INDICATION
     Dosage: 10 MG
     Dates: start: 20030317, end: 20170501
  3. BENICAR [Suspect]
     Active Substance: OLMESARTAN MEDOXOMIL
     Dosage: 40 MG, QD
     Route: 048
     Dates: start: 20030317, end: 20170501

REACTIONS (12)
  - Gastrooesophageal reflux disease [Unknown]
  - Haemorrhoids [Unknown]
  - Inflammatory bowel disease [Recovering/Resolving]
  - Polyp [Unknown]
  - Cholelithiasis [Unknown]
  - Infectious colitis [Unknown]
  - Sprue-like enteropathy [Recovering/Resolving]
  - Coeliac disease [Unknown]
  - Irritable bowel syndrome [Unknown]
  - Pancreatitis [Unknown]
  - Diverticulum [Unknown]
  - Diverticulitis [Unknown]

NARRATIVE: CASE EVENT DATE: 20030317
